FAERS Safety Report 6764849-2 (Version None)
Quarter: 2010Q2

REPORT INFORMATION
  Report Type: 
  Country: None (occurrence: None)
  Receive Date: 20100610
  Receipt Date: 20100602
  Transmission Date: 20101027
  Serious: Yes (Other)
  Sender: FDA-Public Use
  Company Number: BR-ABBOTT-10P-020-0648983-00

PATIENT
  Sex: Female
  Weight: 76 kg

DRUGS (6)
  1. HUMIRA [Suspect]
     Indication: RHEUMATOID ARTHRITIS
     Route: 058
     Dates: start: 20040101
  2. HUMIRA [Suspect]
     Route: 058
  3. PREDNISONE [Concomitant]
     Indication: RHEUMATOID ARTHRITIS
     Route: 048
     Dates: start: 20040101
  4. OMEPRAZOLE [Concomitant]
     Indication: GASTRIC DISORDER
     Route: 048
     Dates: start: 20040101
  5. CALCIO D [Concomitant]
     Indication: BONE DISORDER
     Dosage: 2-20MG TABS IN 24 HOURS
     Route: 048
     Dates: start: 20040101
  6. HYDROCHLOROTHIAZIDE [Concomitant]
     Indication: BLOOD PRESSURE
     Route: 048
     Dates: start: 20040101

REACTIONS (2)
  - BLADDER PROLAPSE [None]
  - UTERINE PROLAPSE [None]
